FAERS Safety Report 18193209 (Version 1)
Quarter: 2020Q3

REPORT INFORMATION
  Report Type: Spontaneous
  Country: CN (occurrence: CN)
  Receive Date: 20200825
  Receipt Date: 20200825
  Transmission Date: 20201103
  Serious: Yes (Life-Threatening, Hospitalization)
  Sender: FDA-Public Use
  Company Number: CN-PFIZER INC-2020326429

PATIENT
  Age: 56 Year
  Sex: Female
  Weight: 40 kg

DRUGS (2)
  1. CYTOSAR [Suspect]
     Active Substance: CYTARABINE
     Indication: ACUTE MYELOID LEUKAEMIA
     Dosage: 2.5 G, 2X/DAY
     Route: 041
     Dates: start: 20200804, end: 20200806
  2. SODIUM CHLORIDE. [Concomitant]
     Active Substance: SODIUM CHLORIDE
     Indication: VEHICLE SOLUTION USE
     Dosage: 250 ML, 2X/DAY
     Route: 041
     Dates: start: 20200804, end: 20200806

REACTIONS (2)
  - Myelosuppression [Recovering/Resolving]
  - Rash [Recovering/Resolving]

NARRATIVE: CASE EVENT DATE: 20200810
